FAERS Safety Report 5003970-6 (Version None)
Quarter: 2006Q2

REPORT INFORMATION
  Report Type: 
  Country: None (occurrence: None)
  Receive Date: 20060515
  Receipt Date: 20060515
  Transmission Date: 20061013
  Serious: No
  Sender: FDA-Public Use
  Company Number: None

PATIENT
  Age: 62 Year
  Sex: Female
  Weight: 54.4316 kg

DRUGS (1)
  1. ZICAM NO-DRIP LIQUID NASAL GEL       ZINCUM GLUCONICUM  2X    ZIVAM LL [Suspect]
     Indication: NASOPHARYNGITIS
     Dosage: ONE SPRAY INTO EACH NOSTRIL  TWICE A DAY  NASAL
     Route: 045
     Dates: start: 20060420, end: 20060425

REACTIONS (1)
  - ANOSMIA [None]
